FAERS Safety Report 5731744-7 (Version None)
Quarter: 2008Q2

REPORT INFORMATION
  Report Type: 
  Country: None (occurrence: None)
  Receive Date: 20080506
  Receipt Date: 20080424
  Transmission Date: 20081010
  Serious: Yes (Hospitalization)
  Sender: FDA-Public Use
  Company Number: 2008BI008044

PATIENT
  Age: 65 Year
  Sex: Male
  Weight: 104.3273 kg

DRUGS (1)
  1. AVONEX [Suspect]
     Indication: MULTIPLE SCLEROSIS
     Dosage: 30 UG; QW; IM
     Route: 030
     Dates: start: 20030327

REACTIONS (3)
  - ATRIAL FIBRILLATION [None]
  - CLOSTRIDIUM DIFFICILE COLITIS [None]
  - URINARY TRACT INFECTION [None]
